FAERS Safety Report 10726138 (Version 1)
Quarter: 2015Q1

REPORT INFORMATION
  Report Type: Spontaneous
  Country: IN (occurrence: None)
  Receive Date: 20150116
  Receipt Date: 20150116
  Transmission Date: 20150721
  Serious: Yes (Other)
  Sender: FDA-Public Use
  Company Number: INT_00616_2015

PATIENT
  Age: 24 Year
  Sex: Male

DRUGS (4)
  1. CISPLATIN (CISPLATIN) (HQ SPECIALTY) [Suspect]
     Active Substance: CISPLATIN
     Indication: KERATINISING SQUAMOUS CELL CARCINOMA OF NASOPHARYNX
  2. VINCRISTINE (VINCRISTINE) [Suspect]
     Active Substance: VINCRISTINE
     Indication: KERATINISING SQUAMOUS CELL CARCINOMA OF NASOPHARYNX
  3. 5-FLUOROURACIL (5-FLUOROURACIL) [Suspect]
     Active Substance: FLUOROURACIL
     Indication: KERATINISING SQUAMOUS CELL CARCINOMA OF NASOPHARYNX
  4. RADIATION THERAPY [Suspect]
     Active Substance: RADIATION THERAPY
     Indication: KERATINISING SQUAMOUS CELL CARCINOMA OF NASOPHARYNX
     Dosage: 60 GRAY OF COBALT - 60 BEAM THERAPY TO THE NASOPHARYHNX AND BILATERAL CERVICAL LYMPH NODES

REACTIONS (9)
  - Pathological fracture [None]
  - Microgenia [None]
  - Pain [None]
  - Trismus [None]
  - Stomatitis [None]
  - Gingivitis [None]
  - Dry mouth [None]
  - Tooth hypoplasia [None]
  - Myelofibrosis [None]
